FAERS Safety Report 25598021 (Version 1)
Quarter: 2025Q3

REPORT INFORMATION
  Report Type: Spontaneous
  Country: US (occurrence: US)
  Receive Date: 20250723
  Receipt Date: 20250723
  Transmission Date: 20251021
  Serious: Yes (Other)
  Sender: AMGEN
  Company Number: US-AMGEN-USASP2025140881

PATIENT
  Age: 90 Year

DRUGS (10)
  1. PREDNISONE [Suspect]
     Active Substance: PREDNISONE
     Indication: Diffuse large B-cell lymphoma
     Dosage: UNK, Q3WK, (C1 -6)
     Route: 065
  2. RITUXIMAB [Suspect]
     Active Substance: RITUXIMAB
     Indication: Diffuse large B-cell lymphoma
     Dosage: UNK, Q3WK,  (C1 -6)
     Route: 065
  3. CYCLOPHOSPHAMIDE [Concomitant]
     Active Substance: CYCLOPHOSPHAMIDE
  4. DOXORUBICIN [Concomitant]
     Active Substance: DOXORUBICIN
  5. VINCRISTINE [Concomitant]
     Active Substance: VINCRISTINE
  6. EPCORITAMAB [Concomitant]
     Active Substance: EPCORITAMAB
     Dosage: 48 MILLIGRAM, QWK, CYCLES [CS] 1-2 [21 D EACH]
     Route: 058
  7. EPCORITAMAB [Concomitant]
     Active Substance: EPCORITAMAB
     Dosage: UNK, Q3WK,C3-6 [21 D EACH]
     Route: 058
  8. EPCORITAMAB [Concomitant]
     Active Substance: EPCORITAMAB
     Dosage: UNK, Q4WK,  C7-8 [28 D EACH]
     Route: 058
  9. EPCORITAMAB [Concomitant]
     Active Substance: EPCORITAMAB
     Route: 058
  10. EPCORITAMAB [Concomitant]
     Active Substance: EPCORITAMAB
     Route: 058

REACTIONS (3)
  - Cytomegalovirus infection reactivation [Unknown]
  - Cerebrovascular accident [Unknown]
  - Confusional state [Unknown]
